FAERS Safety Report 7520347-X (Version None)
Quarter: 2011Q2

REPORT INFORMATION
  Report Type: 
  Country: None (occurrence: None)
  Receive Date: 20110602
  Receipt Date: 20100302
  Transmission Date: 20111010
  Serious: No
  Sender: FDA-Public Use
  Company Number: US-BAYER-201015609NA

PATIENT
  Sex: Female

DRUGS (2)
  1. AVELOX [Suspect]
     Indication: EAR INFECTION
  2. ZITHROMAX [Concomitant]
     Indication: EAR INFECTION

REACTIONS (2)
  - ARTHRALGIA [None]
  - GASTROINTESTINAL DISORDER [None]
